FAERS Safety Report 5241561-2 (Version None)
Quarter: 2007Q1

REPORT INFORMATION
  Report Type: 
  Country: None (occurrence: None)
  Receive Date: 20070212
  Receipt Date: 20070212
  Transmission Date: 20070707
  Serious: Yes (Hospitalization)
  Sender: FDA-Public Use
  Company Number: None

PATIENT
  Age: 56 Year
  Sex: Male
  Weight: 85.3 kg

DRUGS (1)
  1. VALPROIC ACID [Suspect]

REACTIONS (3)
  - COORDINATION ABNORMAL [None]
  - PANCYTOPENIA [None]
  - TREMOR [None]
